FAERS Safety Report 6650333-3 (Version None)
Quarter: 2010Q1

REPORT INFORMATION
  Report Type: 
  Country: None (occurrence: None)
  Receive Date: 20100325
  Receipt Date: 20100318
  Transmission Date: 20100710
  Serious: Yes (Hospitalization)
  Sender: FDA-Public Use
  Company Number: PHHO2010FR04324

PATIENT
  Sex: Male
  Weight: 81.4 kg

DRUGS (5)
  1. MYCOPHENOLIC ACID [Suspect]
     Indication: RENAL TRANSPLANT
     Dosage: 1440 MG / DAY
     Route: 048
  2. NEORAL [Suspect]
     Indication: RENAL TRANSPLANT
     Dosage: 400MG/DAY
     Route: 048
  3. CORTANCYL [Suspect]
     Indication: RENAL TRANSPLANT
     Dosage: 14.5 MG/DAY
     Route: 048
  4. AMLOR [Concomitant]
     Indication: HYPERTENSION
     Dosage: UNK
  5. RASILEZ (ALISKIREN) [Concomitant]
     Indication: HYPERTENSION
     Dosage: UNK

REACTIONS (2)
  - NEPHROSTOMY [None]
  - URINOMA [None]
